FAERS Safety Report 9936922 (Version 1)
Quarter: 2014Q1

REPORT INFORMATION
  Report Type: Spontaneous
  Country: US (occurrence: None)
  Receive Date: 20140115
  Receipt Date: 20140115
  Transmission Date: 20141002
  Serious: Yes (Other)
  Sender: FDA-Public Use
  Company Number: 2013US002617

PATIENT
  Age: 53 Year
  Sex: Female
  Weight: 111 kg

DRUGS (8)
  1. ICLUSIG [Suspect]
     Indication: CHRONIC MYELOID LEUKAEMIA
     Route: 048
     Dates: start: 20130731, end: 20130814
  2. ATIVAN (LORAZEPAM) [Concomitant]
  3. TRAMADOL (TRAMADOL) [Concomitant]
  4. NEURONTIN (GABAPENTIN) [Concomitant]
  5. LISINOPRIL (LISINOPRIL) [Concomitant]
  6. HUMULIN INSULIN (INSULIN, REGULAR) [Concomitant]
  7. PRAVACHOL (PRAVASTATIN SODIUM) ONGING [Concomitant]
  8. NORCOR (HYDROCODONE BITARTRATE, PARCETAMOL) [Concomitant]

REACTIONS (2)
  - Liver function test abnormal [None]
  - Somnolence [None]
